FAERS Safety Report 23509600 (Version 4)
Quarter: 2025Q2

REPORT INFORMATION
  Report Type: Spontaneous
  Country: US (occurrence: US)
  Receive Date: 20240210
  Receipt Date: 20250622
  Transmission Date: 20250716
  Serious: No
  Sender: SANOFI AVENTIS
  Company Number: US-SA-SAC20240206001012

PATIENT
  Sex: Female

DRUGS (22)
  1. DUPIXENT [Suspect]
     Active Substance: DUPILUMAB
     Indication: Asthma
     Dosage: 300 MG, QOW
     Route: 058
     Dates: start: 20210720
  2. FLONASE ALLERGY RELIEF [Concomitant]
     Active Substance: FLUTICASONE PROPIONATE
  3. PREGABALIN [Concomitant]
     Active Substance: PREGABALIN
  4. RESTASIS [Concomitant]
     Active Substance: CYCLOSPORINE
  5. SINGULAIR [Concomitant]
     Active Substance: MONTELUKAST SODIUM
  6. ZYRTEC [Concomitant]
     Active Substance: CETIRIZINE HYDROCHLORIDE
  7. BREZTRI [Concomitant]
     Active Substance: BUDESONIDE\FORMOTEROL\GLYCOPYRROLATE
  8. LEVALBUTEROL [Concomitant]
     Active Substance: LEVALBUTEROL
  9. LISINOPRIL [Concomitant]
     Active Substance: LISINOPRIL
  10. BACLOFEN [Concomitant]
     Active Substance: BACLOFEN
  11. DICLOFENAC [Concomitant]
     Active Substance: DICLOFENAC
  12. METFORMIN HYDROCHLORIDE [Concomitant]
     Active Substance: METFORMIN HYDROCHLORIDE
  13. MONTELUKAST [Concomitant]
     Active Substance: MONTELUKAST
  14. SIMVASTATIN [Concomitant]
     Active Substance: SIMVASTATIN
  15. LEVOTHYROXINE [Concomitant]
     Active Substance: LEVOTHYROXINE
  16. AMITRIPTYLINE [Concomitant]
     Active Substance: AMITRIPTYLINE
  17. CALCIUM [Concomitant]
     Active Substance: CALCIUM
  18. TYLENOL [Concomitant]
     Active Substance: ACETAMINOPHEN
  19. VITAMINS NOS [Concomitant]
     Active Substance: VITAMINS
  20. FLAXSEED [Concomitant]
     Active Substance: FLAX SEED
  21. VITAMIN D NOS [Concomitant]
     Active Substance: CHOLECALCIFEROL\ERGOCALCIFEROL
  22. MAGNESIUM [Concomitant]
     Active Substance: MAGNESIUM

REACTIONS (3)
  - Weight decreased [Not Recovered/Not Resolved]
  - Dyspnoea [Not Recovered/Not Resolved]
  - Product dose omission in error [Unknown]
